FAERS Safety Report 12757172 (Version 1)
Quarter: 2016Q3

REPORT INFORMATION
  Report Type: Spontaneous
  Country: DK (occurrence: DK)
  Receive Date: 20160918
  Receipt Date: 20160918
  Transmission Date: 20161109
  Serious: Yes (Hospitalization, Disabling)
  Sender: FDA-Public Use
  Company Number: DK-ROCHE-1829687

PATIENT
  Age: 75 Year
  Sex: Female

DRUGS (1)
  1. MABTHERA [Suspect]
     Active Substance: RITUXIMAB
     Indication: RHEUMATOID ARTHRITIS
     Route: 065
     Dates: start: 20140814

REACTIONS (17)
  - Dizziness [Unknown]
  - Lung infiltration [Unknown]
  - Pain in extremity [Unknown]
  - Balance disorder [Not Recovered/Not Resolved]
  - Headache [Unknown]
  - Skin hypertrophy [Not Recovered/Not Resolved]
  - Pyrexia [Unknown]
  - Polyneuropathy [Unknown]
  - Pneumonia [Unknown]
  - Skin swelling [Not Recovered/Not Resolved]
  - Infection [Unknown]
  - Night sweats [Unknown]
  - Gait disturbance [Unknown]
  - Sensory disturbance [Not Recovered/Not Resolved]
  - Blood urine present [Unknown]
  - Chills [Unknown]
  - Feeling cold [Unknown]

NARRATIVE: CASE EVENT DATE: 20140821
